FAERS Safety Report 22339353 (Version 1)
Quarter: 2023Q2

REPORT INFORMATION
  Report Type: Spontaneous
  Country: US (occurrence: US)
  Receive Date: 20230518
  Receipt Date: 20230518
  Transmission Date: 20230722
  Serious: Yes (Other)
  Sender: FDA-Public Use
  Company Number: US-PFIZER INC-202300190401

PATIENT
  Age: 82 Year
  Sex: Female
  Weight: 54.43 kg

DRUGS (1)
  1. IBRANCE [Suspect]
     Active Substance: PALBOCICLIB
     Indication: Breast cancer female
     Dosage: 100 MG, CYCLIC (ONCE A DAY BY MOUTH FOR 21 DAYS)
     Route: 048

REACTIONS (3)
  - Choking [Unknown]
  - Dysphagia [Unknown]
  - Oropharyngeal discomfort [Unknown]
